FAERS Safety Report 4855392-6 (Version None)
Quarter: 2005Q4

REPORT INFORMATION
  Report Type: 
  Country: None (occurrence: None)
  Receive Date: 20051125
  Receipt Date: 20050404
  Transmission Date: 20060501
  Serious: Yes (Other)
  Sender: FDA-Public Use
  Company Number: US-JNJFOC-20050105844

PATIENT
  Age: 62 Year
  Sex: Female
  Weight: 68.0396 kg

DRUGS (3)
  1. LEVAQUIN [Suspect]
     Indication: URINARY TRACT INFECTION
     Dosage: 250 MG, ORAL
     Route: 048
     Dates: start: 20020201, end: 20020201
  2. HEART MEDICATION (CARDIAC THERAPY) [Concomitant]
  3. LIPITOR [Concomitant]

REACTIONS (1)
  - NEUROPATHY PERIPHERAL [None]
